FAERS Safety Report 8437977-3 (Version None)
Quarter: 2012Q2

REPORT INFORMATION
  Report Type: 
  Country: None (occurrence: None)
  Receive Date: 20120614
  Receipt Date: 20120524
  Transmission Date: 20120825
  Serious: No
  Sender: FDA-Public Use
  Company Number: US-AMGEN-USASP2012032560

PATIENT
  Sex: Female

DRUGS (5)
  1. IBUPROFEN [Concomitant]
  2. PROLIA [Suspect]
     Indication: OSTEOPOROSIS POSTMENOPAUSAL
     Dosage: 60 MG, Q6MO
     Dates: start: 20120401
  3. MELOXICAM [Concomitant]
     Indication: MYALGIA
     Dosage: UNK UNK, PRN
  4. XOLAIR [Concomitant]
     Indication: ASTHMA
     Dosage: UNK
  5. MUSCLE RELAXANTS [Concomitant]

REACTIONS (4)
  - ABDOMINAL DISCOMFORT [None]
  - BONE PAIN [None]
  - MYALGIA [None]
  - PAIN IN EXTREMITY [None]
